FAERS Safety Report 4642813-7 (Version None)
Quarter: 2005Q2

REPORT INFORMATION
  Report Type: 
  Country: None (occurrence: None)
  Receive Date: 20050421
  Receipt Date: 20050407
  Transmission Date: 20051028
  Serious: Yes (Hospitalization)
  Sender: FDA-Public Use
  Company Number: DSA_26265_2005

PATIENT
  Age: 71 Year
  Sex: Male
  Weight: 80 kg

DRUGS (8)
  1. ENALAPRIL MALEATE [Suspect]
     Dosage: 5 MG QD PO
     Route: 048
     Dates: start: 20040420, end: 20040921
  2. VOLTAREN [Suspect]
     Indication: HAEMARTHROSIS
     Dosage: 50 MG PRN PO
     Route: 048
     Dates: start: 20040420, end: 20040921
  3. ADIRO [Concomitant]
  4. TENORMIN [Concomitant]
  5. ATORVASTATIN CALCIUM [Concomitant]
  6. PLAVIX [Concomitant]
  7. LANZOPRAZOLE [Concomitant]
  8. NITROGLYCERIN ^A.L.^ [Concomitant]

REACTIONS (2)
  - DRUG INTERACTION [None]
  - RENAL FAILURE ACUTE [None]
